FAERS Safety Report 5708421-1 (Version None)
Quarter: 2008Q2

REPORT INFORMATION
  Report Type: 
  Country: None (occurrence: None)
  Receive Date: 20080414
  Receipt Date: 20080403
  Transmission Date: 20081010
  Serious: Yes (Hospitalization, Other)
  Sender: FDA-Public Use
  Company Number: 2007-04290

PATIENT
  Age: 77 Year
  Sex: Male
  Weight: 61 kg

DRUGS (8)
  1. VELCADE [Suspect]
     Indication: MULTIPLE MYELOMA
     Dosage: 2.00 MG, INTRAVENOUS : 1.5 MG, INTRAVENOUS
     Route: 042
     Dates: start: 20071011, end: 20071018
  2. VELCADE [Suspect]
     Indication: MULTIPLE MYELOMA
     Dosage: 2.00 MG, INTRAVENOUS : 1.5 MG, INTRAVENOUS
     Route: 042
     Dates: start: 20071101, end: 20071129
  3. ROCEPHIN [Suspect]
     Indication: MULTIPLE MYELOMA
     Dosage: 1.00 G, INTRAVENOUS
     Route: 042
     Dates: start: 20071026, end: 20071110
  4. ALLOPURINOL [Concomitant]
  5. PURSENNID (SENNA LEAF) [Concomitant]
  6. AMLODIPINE BESYLATE [Concomitant]
  7. DIOVANE  (VALSARTAN) [Concomitant]
  8. ROHYPNOL  (FLUNITRAZEPAM) [Concomitant]

REACTIONS (6)
  - ANAEMIA [None]
  - PHARYNGEAL CANCER STAGE UNSPECIFIED [None]
  - PLATELET COUNT DECREASED [None]
  - PLEURAL EFFUSION [None]
  - PNEUMONIA [None]
  - RASH [None]
